FAERS Safety Report 5026088-5 (Version None)
Quarter: 2006Q2

REPORT INFORMATION
  Report Type: 
  Country: None (occurrence: None)
  Receive Date: 20060612
  Receipt Date: 20060612
  Transmission Date: 20061013
  Serious: Yes (Other)
  Sender: FDA-Public Use
  Company Number: None

PATIENT
  Age: 64 Year
  Sex: Female
  Weight: 85.7298 kg

DRUGS (1)
  1. BONIVA [Suspect]
     Indication: MENOPAUSE
     Dosage: 1 PER MONTH
     Dates: start: 20060101, end: 20060501

REACTIONS (4)
  - ARTHRITIS [None]
  - CONDITION AGGRAVATED [None]
  - MYALGIA [None]
  - OSTEOARTHRITIS [None]
